FAERS Safety Report 5661738-1 (Version None)
Quarter: 2008Q1

REPORT INFORMATION
  Report Type: 
  Country: None (occurrence: None)
  Receive Date: 20080312
  Receipt Date: 20080307
  Transmission Date: 20080703
  Serious: Yes (Hospitalization)
  Sender: FDA-Public Use
  Company Number: B0511901A

PATIENT
  Age: 79 Year
  Sex: Female

DRUGS (6)
  1. ZANTAC [Suspect]
     Route: 048
     Dates: start: 20070424, end: 20080118
  2. CETUXIMAB [Suspect]
     Dosage: 900MG PER DAY
     Route: 042
     Dates: start: 20070424, end: 20080118
  3. OMEPRAZOLE [Suspect]
     Indication: DRUG USE FOR UNKNOWN INDICATION
     Route: 048
  4. UNKNOWN DRUG [Concomitant]
     Indication: DRUG USE FOR UNKNOWN INDICATION
     Route: 048
  5. TAVEGYL [Concomitant]
     Route: 040
     Dates: end: 20080118
  6. OXALIPLATIN [Concomitant]
     Route: 042
     Dates: start: 20070424, end: 20071102

REACTIONS (2)
  - LEUKOCYTOCLASTIC VASCULITIS [None]
  - SKIN NECROSIS [None]
